FAERS Safety Report 20087032 (Version 1)
Quarter: 2021Q4

REPORT INFORMATION
  Report Type: Spontaneous
  Country: US (occurrence: None)
  Receive Date: 20211118
  Receipt Date: 20211118
  Transmission Date: 20220304
  Serious: Yes (Hospitalization)
  Sender: FDA-Public Use
  Company Number: None

PATIENT
  Age: 89 Year
  Sex: Male
  Weight: 81.1 kg

DRUGS (1)
  1. CASIRIVIMAB\IMDEVIMAB [Suspect]
     Active Substance: CASIRIVIMAB\IMDEVIMAB
     Indication: COVID-19
     Dosage: OTHER FREQUENCY : ONCE;?
     Route: 058
     Dates: start: 20211103, end: 20211103

REACTIONS (6)
  - Vomiting [None]
  - Diarrhoea [None]
  - Confusional state [None]
  - Cough [None]
  - Dyspnoea [None]
  - Hypoxia [None]

NARRATIVE: CASE EVENT DATE: 20211105
